FAERS Safety Report 16860705 (Version 4)
Quarter: 2019Q4

REPORT INFORMATION
  Report Type: Spontaneous
  Country: FR (occurrence: FR)
  Receive Date: 20190927
  Receipt Date: 20191125
  Transmission Date: 20200122
  Serious: Yes (Hospitalization, Other)
  Sender: FDA-Public Use
  Company Number: FR-BAYER-2019-173428

PATIENT
  Age: 51 Year
  Sex: Female

DRUGS (5)
  1. PARIET [Concomitant]
     Active Substance: RABEPRAZOLE SODIUM
     Indication: GASTROINTESTINAL MALFORMATION
     Dosage: 20 MG, QD
  2. PARIET [Concomitant]
     Active Substance: RABEPRAZOLE SODIUM
     Indication: GASTROINTESTINAL MALFORMATION
  3. TARDYFERON [Concomitant]
     Active Substance: FERROUS SULFATE
     Indication: IRON DEFICIENCY ANAEMIA
     Dosage: 80 MG, QD
  4. TARDYFERON [Concomitant]
     Active Substance: FERROUS SULFATE
     Indication: IRON DEFICIENCY ANAEMIA
     Dosage: 80 MG
  5. GADOVIST [Suspect]
     Active Substance: GADOBUTROL
     Indication: MAGNETIC RESONANCE IMAGING
     Dosage: UNK, ONCE
     Dates: start: 20190912, end: 20190912

REACTIONS (25)
  - Gastric disorder [Unknown]
  - Back pain [Unknown]
  - Blood pressure decreased [Unknown]
  - Abdominal discomfort [Recovered/Resolved]
  - Paraplegia [Unknown]
  - Flatulence [Unknown]
  - Nausea [Unknown]
  - Vision blurred [Unknown]
  - Eyelid oedema [Recovered/Resolved]
  - Vomiting [None]
  - Tachycardia [Recovered/Resolved]
  - Feeling cold [Unknown]
  - Feeling hot [Unknown]
  - Muscular weakness [Unknown]
  - Hypoaesthesia [Unknown]
  - Nausea [Recovered/Resolved]
  - Hyperhidrosis [Recovered/Resolved]
  - Paraesthesia [Unknown]
  - Hypoaesthesia [Unknown]
  - Defaecation urgency [Unknown]
  - Sensory loss [Unknown]
  - Spinal pain [Unknown]
  - Hypotension [Recovered/Resolved]
  - Diarrhoea [Recovered/Resolved]
  - Vomiting [Recovered/Resolved]

NARRATIVE: CASE EVENT DATE: 20190912
